FAERS Safety Report 5122466-4 (Version None)
Quarter: 2006Q4

REPORT INFORMATION
  Report Type: 
  Country: None (occurrence: None)
  Receive Date: 20061004
  Receipt Date: 20060921
  Transmission Date: 20070319
  Serious: Yes (Hospitalization)
  Sender: FDA-Public Use
  Company Number: 2006BI010751

PATIENT
  Age: 65 Year
  Sex: Female
  Weight: 73.4827 kg

DRUGS (14)
  1. AVONEX [Suspect]
     Indication: MULTIPLE SCLEROSIS
     Dosage: 30 UG;QW;IM
     Route: 030
     Dates: start: 19990101
  2. AMANTADINE HCL [Concomitant]
  3. ALLEGRA [Concomitant]
  4. CALCIUM D [Concomitant]
  5. DUONEB [Concomitant]
  6. DYAZIDE [Concomitant]
  7. FOSAMAX [Concomitant]
  8. FOLIC ACID [Concomitant]
  9. GLUCOSAMINE [Concomitant]
  10. METHOTREXATE [Concomitant]
  11. VYTORIN [Concomitant]
  12. VITAMINE C B12 [Concomitant]
  13. URECHOLINE [Concomitant]
  14. METAMUCIL [Concomitant]

REACTIONS (4)
  - CHEST PAIN [None]
  - DELIRIUM [None]
  - PNEUMONIA [None]
  - PYREXIA [None]
